FAERS Safety Report 10276702 (Version 1)
Quarter: 2014Q3

REPORT INFORMATION
  Report Type: Spontaneous
  Country: US (occurrence: US)
  Receive Date: 20140703
  Receipt Date: 20140703
  Transmission Date: 20150326
  Serious: Yes (Other)
  Sender: FDA-Public Use
  Company Number: PHHY2014US080107

PATIENT
  Age: 65 Year
  Sex: Female

DRUGS (2)
  1. WARFARIN [Suspect]
     Active Substance: WARFARIN
     Indication: ATRIAL FIBRILLATION
  2. METHOTREXATE [Concomitant]
     Active Substance: METHOTREXATE
     Indication: RHEUMATOID ARTHRITIS

REACTIONS (8)
  - Calciphylaxis [Recovered/Resolved]
  - Pain of skin [Recovered/Resolved]
  - Purpura [Recovered/Resolved]
  - Calcinosis [Recovered/Resolved]
  - Rash [Recovered/Resolved]
  - Skin hyperpigmentation [Recovered/Resolved]
  - Lividity [Recovered/Resolved]
  - Skin ulcer [Recovered/Resolved]
